FAERS Safety Report 8771973 (Version 2)
Quarter: 2012Q4

REPORT INFORMATION
  Report Type: 
  Country: FR (occurrence: FR)
  Receive Date: 20120906
  Receipt Date: 20121015
  Transmission Date: 20130627
  Serious: Yes (Hospitalization)
  Sender: FDA-Public Use
  Company Number: FR-009507513-1208FRA011276

PATIENT
  Sex: Female

DRUGS (3)
  1. VICTRELIS [Suspect]
     Indication: PRODUCT USED FOR UNKNOWN INDICATION
     Dosage: 800 mg, tid
     Route: 048
     Dates: start: 201201
  2. VIRAFERONPEG [Suspect]
     Indication: PRODUCT USED FOR UNKNOWN INDICATION
     Dosage: 100 Microgram, qd
     Route: 058
     Dates: start: 201201
  3. REBETOL [Suspect]
     Indication: PRODUCT USED FOR UNKNOWN INDICATION
     Dosage: 200 mg, tid
     Route: 048
     Dates: start: 201201

REACTIONS (3)
  - Oedema peripheral [Not Recovered/Not Resolved]
  - Dysgeusia [Unknown]
  - Decreased appetite [Unknown]
